FAERS Safety Report 9106056 (Version 2)
Quarter: 2013Q2

REPORT INFORMATION
  Report Type: Spontaneous
  Country: US (occurrence: US)
  Receive Date: 20130220
  Receipt Date: 20130605
  Transmission Date: 20140414
  Serious: Yes (Hospitalization)
  Sender: FDA-Public Use
  Company Number: US-BAYER-2013-020197

PATIENT
  Age: 36 Year
  Sex: Female
  Weight: 57.6 kg

DRUGS (9)
  1. YASMIN [Suspect]
     Indication: CONTRACEPTION
     Dosage: UNK
     Dates: start: 2007, end: 20080614
  2. YAZ [Suspect]
     Dosage: UNK
     Dates: start: 200707
  3. MINOCYCLINE [Concomitant]
     Dosage: UNK
     Dates: start: 2002, end: 2010
  4. EPIDUO [Concomitant]
     Dosage: UNK
     Dates: start: 2007, end: 2010
  5. IBUPROFEN [Concomitant]
  6. TETRACYCLINE [Concomitant]
  7. ZOLOFT [Concomitant]
  8. MOTRIN [Concomitant]
  9. VICODIN [Concomitant]

REACTIONS (8)
  - Deep vein thrombosis [None]
  - Pain in extremity [None]
  - Arthralgia [None]
  - Injury [None]
  - Pain [None]
  - General physical health deterioration [None]
  - Anxiety [None]
  - Emotional distress [None]
